FAERS Safety Report 7127586-0 (Version None)
Quarter: 2010Q4

REPORT INFORMATION
  Report Type: 
  Country: None (occurrence: None)
  Receive Date: 20101129
  Receipt Date: 20101117
  Transmission Date: 20110411
  Serious: Yes (Other)
  Sender: FDA-Public Use
  Company Number: PHHY2010US70977

PATIENT
  Sex: Female
  Weight: 150 kg

DRUGS (6)
  1. RECLAST [Suspect]
     Indication: OSTEOPOROSIS
     Dosage: 5 MG
     Route: 042
     Dates: start: 20100907
  2. RECLAST [Suspect]
     Dosage: UNK
     Route: 042
     Dates: start: 20090805
  3. LEVOTHYROXINE SODIUM [Concomitant]
     Indication: HYPOTHYROIDISM
     Dosage: 112 MCG , QD
     Route: 048
  4. SIMVASTATIN [Concomitant]
     Indication: HYPERLIPIDAEMIA
     Dosage: 40 MG, QD
     Route: 048
  5. ACTOPLUS MET [Concomitant]
     Indication: DIABETES MELLITUS
     Dosage: 15/180 BID
     Route: 048
  6. SAXAGLIPTIN [Concomitant]
     Indication: DIABETES MELLITUS
     Dosage: UNK
     Route: 048

REACTIONS (2)
  - PAIN [None]
  - RIB FRACTURE [None]
